FAERS Safety Report 21672526 (Version 1)
Quarter: 2022Q4

REPORT INFORMATION
  Report Type: Spontaneous
  Country: None (occurrence: US)
  Receive Date: 20221202
  Receipt Date: 20221202
  Transmission Date: 20230113
  Serious: No
  Sender: FDA-Public Use
  Company Number: US-Bio Products Laboratory Ltd-2135468

PATIENT
  Age: 49 Year
  Sex: Male

DRUGS (1)
  1. COAGADEX [Suspect]
     Active Substance: COAGULATION FACTOR X HUMAN
     Indication: Factor X deficiency
     Dates: start: 20200204

REACTIONS (1)
  - Arthralgia [Recovered/Resolved]

NARRATIVE: CASE EVENT DATE: 20220120
